FAERS Safety Report 9999486 (Version 2)
Quarter: 2014Q1

REPORT INFORMATION
  Report Type: Spontaneous
  Country: US (occurrence: US)
  Receive Date: 20140312
  Receipt Date: 20140312
  Transmission Date: 20141002
  Serious: No
  Sender: FDA-Public Use
  Company Number: US-TEVA-392678USA

PATIENT
  Age: 9 Year
  Sex: 0

DRUGS (1)
  1. AMOXICILLIN [Suspect]

REACTIONS (1)
  - Vomiting [Unknown]
